FAERS Safety Report 7920112-5 (Version None)
Quarter: 2011Q4

REPORT INFORMATION
  Report Type: 
  Country: None (occurrence: None)
  Receive Date: 20111117
  Receipt Date: 20111107
  Transmission Date: 20120403
  Serious: Yes (Hospitalization)
  Sender: FDA-Public Use
  Company Number: IT-SANOFI-AVENTIS-2009SA006363

PATIENT
  Age: 78 Year
  Sex: Male
  Weight: 75 kg

DRUGS (6)
  1. LEUPROLIDE ACETATE [Suspect]
     Indication: PROSTATE CANCER
     Route: 058
     Dates: start: 20090914
  2. SINEMET [Concomitant]
     Indication: PARKINSON'S DISEASE
     Route: 048
     Dates: start: 20060101
  3. TRANDOLAPRIL [Concomitant]
     Route: 048
     Dates: start: 20050101
  4. BICALUTAMIDE [Suspect]
     Indication: PROSTATE CANCER
     Route: 065
     Dates: start: 20070914
  5. AMLODIPINE BESYLATE [Concomitant]
     Route: 048
     Dates: start: 20050101
  6. STALEVO 100 [Concomitant]
     Indication: PARKINSON'S DISEASE
     Route: 048
     Dates: start: 20060101

REACTIONS (2)
  - DUODENAL ULCER [None]
  - MELAENA [None]
